FAERS Safety Report 8450662-7 (Version None)
Quarter: 2012Q2

REPORT INFORMATION
  Report Type: 
  Country: None (occurrence: None)
  Receive Date: 20120620
  Receipt Date: 20120614
  Transmission Date: 20120825
  Serious: Yes (Other)
  Sender: FDA-Public Use
  Company Number: US-PFIZER INC-2012144935

PATIENT
  Sex: Male

DRUGS (2)
  1. LYRICA [Suspect]
     Dosage: UNK
  2. GABA [Suspect]
     Dosage: UNK

REACTIONS (3)
  - VISUAL IMPAIRMENT [None]
  - HERPES ZOSTER [None]
  - DIABETES MELLITUS [None]
